FAERS Safety Report 13410658 (Version 3)
Quarter: 2018Q1

REPORT INFORMATION
  Report Type: Spontaneous
  Country: US (occurrence: US)
  Receive Date: 20170406
  Receipt Date: 20180119
  Transmission Date: 20180508
  Serious: No
  Sender: FDA-Public Use
  Company Number: US-JNJFOC-20170300073

PATIENT
  Age: 15 Year
  Sex: Male

DRUGS (3)
  1. RISPERDAL [Suspect]
     Active Substance: RISPERIDONE
     Indication: ATTENTION DEFICIT/HYPERACTIVITY DISORDER
     Dosage: VARYING DOSES OF 0.25 MG, 1 MG AND 2 MG
     Route: 048
     Dates: start: 20021107, end: 20071025
  2. RISPERDAL [Suspect]
     Active Substance: RISPERIDONE
     Indication: BIPOLAR DISORDER
     Dosage: VARYING DOSES OF 0.25 MG, 1 MG AND 2 MG
     Route: 048
     Dates: start: 20021107, end: 20071025
  3. RISPERDAL [Suspect]
     Active Substance: RISPERIDONE
     Indication: INSOMNIA
     Dosage: VARYING DOSES OF 0.25 MG, 1 MG AND 2 MG
     Route: 048
     Dates: start: 20021107, end: 20071025

REACTIONS (3)
  - Gynaecomastia [Unknown]
  - Drug ineffective [Unknown]
  - Emotional disorder [Unknown]

NARRATIVE: CASE EVENT DATE: 200710
